FAERS Safety Report 21864731 (Version 1)
Quarter: 2023Q1

REPORT INFORMATION
  Report Type: Spontaneous
  Country: US (occurrence: US)
  Receive Date: 20230116
  Receipt Date: 20230116
  Transmission Date: 20230417
  Serious: No
  Sender: FDA-Public Use
  Company Number: US-drreddys-LIT/USA/22/0159324

PATIENT
  Age: 66 Year
  Sex: Female

DRUGS (5)
  1. LIDOCAINE [Suspect]
     Active Substance: LIDOCAINE
     Indication: Necrobiosis lipoidica diabeticorum
     Route: 061
  2. CLINDAMYCIN [Suspect]
     Active Substance: CLINDAMYCIN
     Indication: Product used for unknown indication
     Dosage: 10-DAY COURSE
  3. DOXYCYCLINE [Suspect]
     Active Substance: DOXYCYCLINE
     Indication: Product used for unknown indication
     Dosage: FOR 10 DAYS
  4. CLOBETASOL [Suspect]
     Active Substance: CLOBETASOL
     Indication: Product used for unknown indication
     Dosage: FOR 10 DAYS
  5. PARAFFIN [Suspect]
     Active Substance: PARAFFIN
     Indication: Product used for unknown indication

REACTIONS (1)
  - Drug ineffective for unapproved indication [Unknown]
